FAERS Safety Report 22657503 (Version 1)
Quarter: 2023Q2

REPORT INFORMATION
  Report Type: Spontaneous
  Country: US (occurrence: US)
  Receive Date: 20230630
  Receipt Date: 20230630
  Transmission Date: 20230721
  Serious: No
  Sender: FDA-Public Use
  Company Number: US-drreddys-SPO/USA/23/0166135

PATIENT
  Age: 19 Year

DRUGS (1)
  1. ISOTRETINOIN [Suspect]
     Active Substance: ISOTRETINOIN
     Indication: Acne

REACTIONS (4)
  - Xerosis [Unknown]
  - Acne [Unknown]
  - Epistaxis [Unknown]
  - Cheilitis [Unknown]

NARRATIVE: CASE EVENT DATE: 20230516
